FAERS Safety Report 6758811-3 (Version None)
Quarter: 2010Q2

REPORT INFORMATION
  Report Type: 
  Country: None (occurrence: None)
  Receive Date: 20100607
  Receipt Date: 20100503
  Transmission Date: 20101027
  Serious: Yes (Hospitalization)
  Sender: FDA-Public Use
  Company Number: ES-ELI_LILLY_AND_COMPANY-ES201005007902

PATIENT
  Sex: Female
  Weight: 64 kg

DRUGS (13)
  1. FORTEO [Suspect]
     Indication: OSTEOPOROSIS
     Dosage: 20 UG, DAILY (1/D)
     Route: 058
     Dates: start: 20090821, end: 20100401
  2. OMEPRAZOLE [Concomitant]
     Indication: PROPHYLAXIS
     Dosage: UNK, DAILY (1/D)
     Route: 048
  3. HUMALOG [Concomitant]
     Indication: TYPE 2 DIABETES MELLITUS
     Dosage: 24 U, EACH MORNING
     Route: 058
  4. HUMALOG [Concomitant]
     Dosage: 14 U, EACH EVENING
     Route: 058
  5. METFORMIN HCL [Concomitant]
     Indication: TYPE 2 DIABETES MELLITUS
     Dosage: 0.5 D/F, 2/D
     Route: 048
  6. CORDIPLAST [Concomitant]
     Indication: CARDIAC FAILURE
     Dosage: 1 D/F, DAILY (1/D)
     Route: 061
  7. EMCONCOR [Concomitant]
     Indication: CARDIAC FAILURE
     Dosage: 1 D/F, DAILY (1/D)
     Route: 048
  8. CELESTODERM [Concomitant]
     Indication: DERMATITIS
     Dosage: 1 D/F, 2/D
     Route: 061
  9. CIPRALEX [Concomitant]
     Indication: DEPRESSION
     Dosage: 15 MG, DAILY (1/D)
     Route: 048
  10. CITALOPRAM [Concomitant]
     Indication: DEPRESSION
     Dosage: 1 D/F, DAILY (1/D)
     Route: 048
     Dates: end: 20100401
  11. LORAZEPAM [Concomitant]
     Indication: RELAXATION THERAPY
     Dosage: 0.5 D/F, DAILY (1/D)
     Route: 048
  12. SINTROM [Concomitant]
     Indication: ATRIAL FIBRILLATION
     Dosage: UNK, AS NEEDED
     Route: 048
  13. SUTRIL [Concomitant]
     Indication: CARDIAC FAILURE
     Dosage: 5 MG, DAILY (1/D)
     Route: 048

REACTIONS (6)
  - ATRIAL FIBRILLATION [None]
  - CARDIAC ENZYMES INCREASED [None]
  - CARDIAC FAILURE [None]
  - CARDIOMEGALY [None]
  - PURPURA [None]
  - TYPE 2 DIABETES MELLITUS [None]
